FAERS Safety Report 8929020 (Version 1)
Quarter: 2012Q4

REPORT INFORMATION
  Report Type: 
  Country: AU (occurrence: AU)
  Receive Date: 20121128
  Receipt Date: 20121128
  Transmission Date: 20130627
  Serious: Yes (Hospitalization)
  Sender: FDA-Public Use
  Company Number: PHHY2012AU108445

PATIENT
  Age: 75 Year
  Sex: Male

DRUGS (7)
  1. ACLASTA [Suspect]
     Dosage: 5 mg, UNK
     Route: 042
     Dates: start: 20101011
  2. ACLASTA [Suspect]
     Dosage: 5 mg, UNK
     Route: 042
     Dates: start: 20111212
  3. PREDNISONE [Concomitant]
  4. SERETIDE [Concomitant]
  5. NEULIN [Concomitant]
  6. VENTOLIN [Concomitant]
  7. ATROVENT [Concomitant]

REACTIONS (4)
  - Infective exacerbation of chronic obstructive airways disease [Recovering/Resolving]
  - Malaise [Recovering/Resolving]
  - Pyrexia [Recovering/Resolving]
  - Dyspnoea [Recovering/Resolving]
